FAERS Safety Report 24299363 (Version 1)
Quarter: 2024Q3

REPORT INFORMATION
  Report Type: Spontaneous
  Country: IT (occurrence: IT)
  Receive Date: 20240909
  Receipt Date: 20240909
  Transmission Date: 20241017
  Serious: Yes (Other)
  Sender: AMGEN
  Company Number: IT-AMGEN-ITASP2024175144

PATIENT
  Age: 25 Year
  Sex: Female

DRUGS (20)
  1. FILGRASTIM [Suspect]
     Active Substance: FILGRASTIM
     Indication: Haematopoietic stem cell mobilisation
     Dosage: UNK
     Route: 065
  2. METHOTREXATE [Suspect]
     Active Substance: METHOTREXATE
     Indication: Primary mediastinal large B-cell lymphoma stage IV
     Dosage: UNK, ON CYCLES 2, 6, 10 FOR 3 MONTHS
     Route: 065
     Dates: start: 201610, end: 201701
  3. METHOTREXATE [Suspect]
     Active Substance: METHOTREXATE
     Indication: Diffuse large B-cell lymphoma
     Dosage: UNK, 4 CYCLES, PART OF MATRIX REGIMEN FOR 4 MONTHS
     Route: 065
     Dates: start: 201704, end: 201708
  4. CYCLOPHOSPHAMIDE [Suspect]
     Active Substance: CYCLOPHOSPHAMIDE
     Indication: Primary mediastinal large B-cell lymphoma
     Dosage: UNK, ON CYCLES 1, 3, 5, 7, 9, 11  FOR 3 MONTHS
     Route: 065
     Dates: start: 201610, end: 201701
  5. DOXORUBICIN [Suspect]
     Active Substance: DOXORUBICIN
     Indication: Primary mediastinal large B-cell lymphoma
     Dosage: UNK, CYCLICAL, CYCLES 4, 8, 12  FOR 3 MONTHS
     Route: 065
     Dates: start: 201610, end: 201701
  6. DOXORUBICIN [Suspect]
     Active Substance: DOXORUBICIN
     Dosage: UNK, PART OF R-MACOP-B REGIMEN; ON CYCLES 1, 3, 5, 7, 9, 11
     Route: 065
     Dates: start: 2016
  7. DOXORUBICIN [Suspect]
     Active Substance: DOXORUBICIN
     Dosage: UNK, ON CYCLES 1, 3, 5, 7, 9, 11
     Route: 065
     Dates: start: 201610, end: 201701
  8. VINCRISTINE [Suspect]
     Active Substance: VINCRISTINE
     Indication: Primary mediastinal large B-cell lymphoma
     Dosage: UNK, PART OF R-MACOP-B REGIMEN; ON CYCLES 2, 6, 10 AND 4, 8, 12 UNK
     Route: 065
     Dates: start: 201610, end: 201701
  9. BLEOMYCIN [Suspect]
     Active Substance: BLEOMYCIN SULFATE
     Indication: Primary mediastinal large B-cell lymphoma
     Dosage: UNK, CYCLES 4, 8, 12/PART OF R-MACOP-B REGIMEN; ON CYCLES 4,8,12 FOR 3 MONTHS
     Route: 065
     Dates: start: 201610, end: 201701
  10. THIOTEPA [Suspect]
     Active Substance: THIOTEPA
     Indication: Bone marrow conditioning regimen
     Dosage: UNK, 4 CYCLES 2900 MG IN FORUTH CYCLE/ PART OF MATRIX REGIMEN 4 MONTHS
     Route: 065
     Dates: start: 201704, end: 201708
  11. THIOTEPA [Suspect]
     Active Substance: THIOTEPA
     Indication: Diffuse large B-cell lymphoma
  12. THIOTEPA [Suspect]
     Active Substance: THIOTEPA
     Indication: Primary mediastinal large B-cell lymphoma
  13. CARMUSTINE [Suspect]
     Active Substance: CARMUSTINE
     Indication: Bone marrow conditioning regimen
     Dosage: UNK,PART OF CONDITIONING TREATMENT
     Route: 065
  14. RITUXIMAB [Suspect]
     Active Substance: RITUXIMAB
     Indication: Primary mediastinal large B-cell lymphoma
     Dosage: UNK, CYCLICAL , PART OF R-MACOP-B REGIMEN; RITUXIMAB BOOST DURING 4 OF THE 12 CYCLES
     Route: 065
     Dates: start: 2016
  15. RITUXIMAB [Suspect]
     Active Substance: RITUXIMAB
     Indication: Diffuse large B-cell lymphoma
     Dosage: UNK, CYCLICAL, PART OF MATRIX REGIMEN
     Route: 065
     Dates: start: 201704, end: 201708
  16. RITUXIMAB [Suspect]
     Active Substance: RITUXIMAB
     Dosage: UNK, RITUXIMAB BOOST DURING FOUR OF THE 12 CYCLES
     Route: 065
     Dates: start: 201610, end: 201701
  17. PREDNISONE [Concomitant]
     Active Substance: PREDNISONE
     Indication: Primary mediastinal large B-cell lymphoma
     Dosage: UNK, CYCLICAL, 12 CYCLE, PART OF R-MACOP-B REGIMEN; GIVEN  CONTINUOUSLY
     Dates: start: 201610, end: 201701
  18. CYTARABINE [Suspect]
     Active Substance: CYTARABINE
     Indication: Primary mediastinal large B-cell lymphoma
     Dosage: 2900 MILLIGRAM (A SINGLE DOSE OF 2900MG OF CYTARABINE IN THE FOURTH CYCLE)
     Route: 065
     Dates: start: 2017, end: 201708
  19. CYTARABINE [Suspect]
     Active Substance: CYTARABINE
     Dosage: UNK, CYCLICAL, 4 CYCLE/PART OF MATRIX REGIMEN
     Route: 065
     Dates: start: 201704, end: 201708
  20. PLERIXAFOR [Concomitant]
     Active Substance: PLERIXAFOR
     Indication: Haematopoietic stem cell mobilisation
     Dosage: UNK
     Dates: start: 2017

REACTIONS (10)
  - Neutropenia [Recovered/Resolved]
  - Thrombocytopenia [Unknown]
  - Thyroid adenoma [Unknown]
  - Diffuse large B-cell lymphoma [Unknown]
  - Pneumonia fungal [Unknown]
  - Dry eye [Unknown]
  - Anaemia [Unknown]
  - Hypersensitivity [Unknown]
  - Herpes simplex reactivation [Unknown]
  - Haematotoxicity [Unknown]

NARRATIVE: CASE EVENT DATE: 20170101
